FAERS Safety Report 7927919-9 (Version None)
Quarter: 2011Q4

REPORT INFORMATION
  Report Type: 
  Country: None (occurrence: None)
  Receive Date: 20111116
  Receipt Date: 20111103
  Transmission Date: 20120403
  Serious: Yes (Life-Threatening, Hospitalization, Other)
  Sender: FDA-Public Use
  Company Number: 20110720

PATIENT
  Age: 37 Year
  Sex: Female
  Weight: 63.5036 kg

DRUGS (9)
  1. CELEXA [Concomitant]
  2. ORAL CONTRACEPTIVE [Concomitant]
  3. PALMELOR (NORTRIPTYLINE) [Concomitant]
  4. ELAVIL [Concomitant]
  5. VENOFER [Suspect]
     Indication: ANAEMIA
     Dosage: 1ST AND ONLY DOSE
     Route: 041
     Dates: start: 20110518, end: 20110518
  6. KLONOPIN [Concomitant]
  7. VITAMIN TAB [Concomitant]
  8. ARMOUR THYROID, 90 MCG [Concomitant]
  9. LEXAPRO [Concomitant]

REACTIONS (15)
  - DELIRIUM [None]
  - COMPLEX PARTIAL SEIZURES [None]
  - AMNESIA [None]
  - BLOOD MERCURY ABNORMAL [None]
  - DIZZINESS [None]
  - ENCEPHALOPATHY [None]
  - MENTAL STATUS CHANGES [None]
  - CONFUSIONAL STATE [None]
  - PARAESTHESIA [None]
  - TACHYCARDIA [None]
  - HYPOTENSION [None]
  - FALL [None]
  - DYSGEUSIA [None]
  - IMPAIRED DRIVING ABILITY [None]
  - HYPERTENSION [None]
